FAERS Safety Report 15846622 (Version 1)
Quarter: 2019Q1

REPORT INFORMATION
  Report Type: Spontaneous
  Country: FR (occurrence: FR)
  Receive Date: 20190121
  Receipt Date: 20190121
  Transmission Date: 20190417
  Serious: Yes (Hospitalization)
  Sender: FDA-Public Use
  Company Number: FR-UCBSA-2019002154

PATIENT
  Age: 15 Year
  Sex: Female
  Weight: 60 kg

DRUGS (3)
  1. DOLIPRANE [Suspect]
     Active Substance: ACETAMINOPHEN
     Indication: TOXICITY TO VARIOUS AGENTS
     Dosage: 12 G, TOTAL
     Route: 048
     Dates: start: 20181103, end: 20181103
  2. KEPPRA [Suspect]
     Active Substance: LEVETIRACETAM
     Indication: TOXICITY TO VARIOUS AGENTS
     Dosage: 10000 MG, TOTAL
     Route: 048
     Dates: start: 20181103, end: 20181103
  3. KEPPRA [Suspect]
     Active Substance: LEVETIRACETAM
     Indication: OFF LABEL USE

REACTIONS (3)
  - Vomiting [Recovered/Resolved]
  - Toxicity to various agents [Recovered/Resolved]
  - Off label use [Unknown]

NARRATIVE: CASE EVENT DATE: 20181103
